FAERS Safety Report 16666219 (Version 1)
Quarter: 2019Q3

REPORT INFORMATION
  Report Type: Spontaneous
  Country: US (occurrence: US)
  Receive Date: 20190805
  Receipt Date: 20190805
  Transmission Date: 20191004
  Serious: Yes (Other)
  Sender: FDA-Public Use
  Company Number: US-ACCORD-092667

PATIENT
  Age: 45 Year
  Sex: Female
  Weight: 86.64 kg

DRUGS (3)
  1. PERJETA [Concomitant]
     Active Substance: PERTUZUMAB
     Dates: start: 20150404, end: 20150626
  2. TAMOXIFEN [Concomitant]
     Active Substance: TAMOXIFEN
     Dates: start: 20150621, end: 20160311
  3. DOCETAXEL ACCORD [Suspect]
     Active Substance: DOCETAXEL
     Indication: BREAST CANCER
     Dates: start: 20150404, end: 20150626

REACTIONS (1)
  - Alopecia [Not Recovered/Not Resolved]

NARRATIVE: CASE EVENT DATE: 201512
